FAERS Safety Report 6110357-1 (Version None)
Quarter: 2009Q1

REPORT INFORMATION
  Report Type: 
  Country: None (occurrence: None)
  Receive Date: 20090310
  Receipt Date: 20090304
  Transmission Date: 20090719
  Serious: Yes (Hospitalization)
  Sender: FDA-Public Use
  Company Number: IT-ABBOTT-09P-083-0502081-00

PATIENT
  Sex: Male

DRUGS (2)
  1. FULCROSUPRA [Suspect]
     Indication: DRUG USE FOR UNKNOWN INDICATION
     Route: 048
     Dates: start: 20081201, end: 20090128
  2. TORVAST [Suspect]
     Indication: DYSLIPIDAEMIA
     Route: 048
     Dates: start: 20080101, end: 20090128

REACTIONS (3)
  - ILL-DEFINED DISORDER [None]
  - MYALGIA [None]
  - RHABDOMYOLYSIS [None]
